FAERS Safety Report 20162092 (Version 1)
Quarter: 2021Q4

REPORT INFORMATION
  Report Type: Spontaneous
  Country: US (occurrence: None)
  Receive Date: 20211208
  Receipt Date: 20211208
  Transmission Date: 20220303
  Serious: Yes (Hospitalization)
  Sender: FDA-Public Use
  Company Number: None

PATIENT
  Age: 61 Year
  Sex: Female

DRUGS (20)
  1. REPATHA [Suspect]
     Active Substance: EVOLOCUMAB
     Indication: Hyperlipidaemia
     Dosage: OTHER FREQUENCY : Q2WKS;?
     Route: 058
     Dates: start: 20210114
  2. ALBUTEROL [Concomitant]
     Active Substance: ALBUTEROL
  3. ALPRAZOLAM [Concomitant]
     Active Substance: ALPRAZOLAM
  4. AZITHROMYCIN [Concomitant]
     Active Substance: AZITHROMYCIN
  5. BACLOFEN [Concomitant]
     Active Substance: BACLOFEN
  6. CLOPIDOGREAL [Concomitant]
  7. ESCITALOPRAM [Concomitant]
  8. EZETIMBEE [Concomitant]
  9. GABAPENTIN [Concomitant]
     Active Substance: GABAPENTIN
  10. HYDROCHLOROT [Concomitant]
  11. ISOSORB [Concomitant]
  12. MONTELUKAST [Concomitant]
  13. ONDANSETRON [Concomitant]
  14. PROPRANOLOL [Concomitant]
     Active Substance: PROPRANOLOL HYDROCHLORIDE
  15. SPIRIVA [Concomitant]
     Active Substance: TIOTROPIUM BROMIDE MONOHYDRATE
  16. SPIRIVA [Concomitant]
  17. SYMBICORT AER [Concomitant]
  18. TRAZODONE [Concomitant]
  19. VENTOLIN HFA AER [Concomitant]
  20. VITAMIN D-ASPIRIN [Concomitant]

REACTIONS (1)
  - Myocardial infarction [None]

NARRATIVE: CASE EVENT DATE: 20211118
